FAERS Safety Report 6268279-1 (Version None)
Quarter: 2009Q3

REPORT INFORMATION
  Report Type: 
  Country: None (occurrence: None)
  Receive Date: 20090713
  Receipt Date: 20090713
  Transmission Date: 20100115
  Serious: Yes (Life-Threatening, Other)
  Sender: FDA-Public Use
  Company Number: None

PATIENT
  Age: 23 Year
  Sex: Female
  Weight: 93.8946 kg

DRUGS (1)
  1. IMITREX [Suspect]
     Indication: MIGRAINE
     Dosage: EQ 6MG BASE/0.5ML EO 12MG BAS ONCE SQ
     Route: 058
     Dates: start: 20070327, end: 20070327

REACTIONS (1)
  - SEROTONIN SYNDROME [None]
